FAERS Safety Report 10880289 (Version 5)
Quarter: 2017Q3

REPORT INFORMATION
  Report Type: Spontaneous
  Country: US (occurrence: US)
  Receive Date: 20150302
  Receipt Date: 20170707
  Transmission Date: 20171127
  Serious: Yes (Hospitalization)
  Sender: FDA-Public Use
  Company Number: US-PFIZER INC-2015072398

PATIENT
  Age: 69 Year
  Sex: Female
  Weight: 45.35 kg

DRUGS (9)
  1. SYNTHROID [Concomitant]
     Active Substance: LEVOTHYROXINE SODIUM
     Indication: HYPOTHYROIDISM
     Dosage: 88 ?G, DAILY
     Dates: start: 1987
  2. SYNTHROID [Concomitant]
     Active Substance: LEVOTHYROXINE SODIUM
     Dosage: UNK
     Dates: start: 1990
  3. XALKORI [Suspect]
     Active Substance: CRIZOTINIB
     Indication: NON-SMALL CELL LUNG CANCER METASTATIC
     Dosage: 250 MG, TWICE A DAY
     Dates: start: 20150213, end: 20150225
  4. FOSAMAX [Concomitant]
     Active Substance: ALENDRONATE SODIUM
     Dosage: UNK
     Dates: start: 2015
  5. SYNTHROID [Concomitant]
     Active Substance: LEVOTHYROXINE SODIUM
     Dosage: 0.75 MG, DAILY
  6. FOSAMAX [Concomitant]
     Active Substance: ALENDRONATE SODIUM
     Indication: OSTEOPOROSIS
     Dosage: 70 MG, WEEKLY
     Route: 048
  7. XALKORI [Suspect]
     Active Substance: CRIZOTINIB
     Dosage: 500 MG, DAILY
     Route: 048
     Dates: start: 201501, end: 20170528
  8. XALKORI [Suspect]
     Active Substance: CRIZOTINIB
     Dosage: 250 MG, TWICE A DAY
     Dates: start: 201502, end: 201705
  9. ZYKADIA [Concomitant]
     Active Substance: CERITINIB
     Dosage: UNK
     Dates: start: 201705

REACTIONS (4)
  - Neoplasm progression [Unknown]
  - Abdominal discomfort [Not Recovered/Not Resolved]
  - Diarrhoea [Not Recovered/Not Resolved]
  - Muscle spasms [Not Recovered/Not Resolved]

NARRATIVE: CASE EVENT DATE: 20150213
